FAERS Safety Report 9094482 (Version 1)
Quarter: 2013Q1

REPORT INFORMATION
  Report Type: Spontaneous
  Country: CA (occurrence: CA)
  Receive Date: 20130218
  Receipt Date: 20130218
  Transmission Date: 20140127
  Serious: Yes (Other)
  Sender: FDA-Public Use
  Company Number: CA-ELI_LILLY_AND_COMPANY-CA201302002696

PATIENT
  Age: 56 Year
  Sex: Male

DRUGS (5)
  1. CYMBALTA [Suspect]
     Indication: NEURALGIA
     Dosage: 60 MG, UNKNOWN
  2. CYMBALTA [Suspect]
     Dosage: 30 MG, UNKNOWN
  3. CYMBALTA [Suspect]
     Dosage: 1 DF, UNKNOWN
     Dates: end: 20130201
  4. SIMPONI [Concomitant]
  5. REMICADE [Concomitant]

REACTIONS (10)
  - Loss of consciousness [Not Recovered/Not Resolved]
  - Off label use [Recovered/Resolved]
  - Intentional drug misuse [Recovered/Resolved]
  - Gait disturbance [Not Recovered/Not Resolved]
  - Drug withdrawal syndrome [Not Recovered/Not Resolved]
  - Tinnitus [Not Recovered/Not Resolved]
  - Paraesthesia [Not Recovered/Not Resolved]
  - Hyperhidrosis [Not Recovered/Not Resolved]
  - Nausea [Not Recovered/Not Resolved]
  - Dizziness [Not Recovered/Not Resolved]
